FAERS Safety Report 7546782-1 (Version None)
Quarter: 2011Q2

REPORT INFORMATION
  Report Type: 
  Country: None (occurrence: None)
  Receive Date: 20110607
  Receipt Date: 20110531
  Transmission Date: 20111010
  Serious: Yes (Death, Hospitalization)
  Sender: FDA-Public Use
  Company Number: 2010003902

PATIENT
  Age: 67 Year
  Sex: Female
  Weight: 46 kg

DRUGS (9)
  1. MAGNESIUM HYDROXIDE TAB [Concomitant]
  2. NOVAMIN (PROCHLORPERAZINE) [Concomitant]
  3. LOXONIN (LOXOPROFEN SODIUM) [Concomitant]
  4. OXYCONTIN [Concomitant]
  5. DEPAS (ETIZOLAM) [Concomitant]
  6. AMITRIPTYLINE HCL [Concomitant]
  7. ERLOTINIB HYDROCHLORIDE [Suspect]
     Indication: LUNG ADENOCARCINOMA
     Dosage: 150 MG, UID/QD,ORAL
     Route: 048
  8. TAKEPRON (LANSOPRAZOLE) [Concomitant]
  9. CLEANAL (FUDOSTEINE) [Concomitant]

REACTIONS (4)
  - DISEASE PROGRESSION [None]
  - PNEUMONIA [None]
  - NON-SMALL CELL LUNG CANCER [None]
  - INTERSTITIAL LUNG DISEASE [None]
